FAERS Safety Report 4311242-8 (Version None)
Quarter: 2004Q1

REPORT INFORMATION
  Report Type: 
  Country: None (occurrence: None)
  Receive Date: 20040302
  Receipt Date: 20040121
  Transmission Date: 20041129
  Serious: No
  Sender: FDA-Public Use
  Company Number: 200324279BWH

PATIENT
  Age: 75 Year
  Sex: Male

DRUGS (11)
  1. LEVITRA [Suspect]
     Indication: ERECTILE DYSFUNCTION
     Dosage: 10 MG, PRN, ORAL; 20 MG, PRN, ORAL
     Route: 048
     Dates: start: 20030918
  2. LEVITRA [Suspect]
     Indication: ERECTILE DYSFUNCTION
     Dosage: 10 MG, PRN, ORAL; 20 MG, PRN, ORAL
     Route: 048
     Dates: start: 20030920
  3. VIAGRA [Concomitant]
  4. ACCUPRIL [Concomitant]
  5. ZETIA [Concomitant]
  6. UROCIT-K [Concomitant]
  7. NEXIUM [Concomitant]
  8. ASPIRIN [Concomitant]
  9. WELLBUTRIN [Concomitant]
  10. VITAMIN C [Concomitant]
  11. VITAMIN E [Concomitant]

REACTIONS (1)
  - ERECTILE DYSFUNCTION [None]
